FAERS Safety Report 6562222-3 (Version None)
Quarter: 2010Q1

REPORT INFORMATION
  Report Type: 
  Country: None (occurrence: None)
  Receive Date: 20100130
  Receipt Date: 20091103
  Transmission Date: 20100710
  Serious: No
  Sender: FDA-Public Use
  Company Number: US-ABBOTT-09P-163-0607357-00

PATIENT
  Sex: Female
  Weight: 90.346 kg

DRUGS (6)
  1. HUMIRA [Suspect]
     Indication: CROHN'S DISEASE
     Dosage: 160 LOADING DOSE
     Route: 058
     Dates: start: 20091012, end: 20091012
  2. HUMIRA [Suspect]
  3. PREDNISONE [Suspect]
     Indication: CROHN'S DISEASE
     Dosage: TAPERED DOWN
     Dates: end: 20091005
  4. CLONAZEPAM [Concomitant]
     Indication: DEPRESSION
  5. FLAGYL [Concomitant]
     Indication: PROPHYLAXIS
     Route: 048
  6. FLAGYL [Concomitant]
     Indication: CROHN'S DISEASE

REACTIONS (1)
  - ALOPECIA [None]
